FAERS Safety Report 6388787-2 (Version None)
Quarter: 2009Q4

REPORT INFORMATION
  Report Type: 
  Country: None (occurrence: None)
  Receive Date: 20091001
  Receipt Date: 20090716
  Transmission Date: 20100525
  Serious: Yes (Death)
  Sender: FDA-Public Use
  Company Number: 2009008583

PATIENT
  Age: 93 Year
  Sex: Male
  Weight: 59 kg

DRUGS (7)
  1. EFFENTORA (TABLETS) [Suspect]
     Indication: CANCER PAIN
     Dosage: BU
     Route: 002
     Dates: start: 20090712, end: 20090714
  2. PANTOPRAZOLE SODIUM [Concomitant]
  3. METAMIZOLE (METAMIZOLE) [Concomitant]
  4. DEXAMETHASONE TAB [Concomitant]
  5. FENTANYL-100 [Concomitant]
  6. PALLADON (HYDROMORPHONE) [Concomitant]
  7. KETAMINE (KETAMINE) [Concomitant]

REACTIONS (5)
  - EYE PRURITUS [None]
  - MALIGNANT NEOPLASM PROGRESSION [None]
  - NASAL DISCOMFORT [None]
  - PROSTATE CANCER METASTATIC [None]
  - PRURITUS [None]
